FAERS Safety Report 4514869-3 (Version None)
Quarter: 2004Q4

REPORT INFORMATION
  Report Type: 
  Country: None (occurrence: None)
  Receive Date: 20041201
  Receipt Date: 20041122
  Transmission Date: 20050328
  Serious: Yes (Hospitalization)
  Sender: FDA-Public Use
  Company Number: US-JNJFOC-20041106180

PATIENT
  Age: 63 Year
  Sex: Female

DRUGS (3)
  1. DURAGESIC [Suspect]
     Indication: CANCER PAIN
     Route: 062
  2. AMBIEN [Concomitant]
     Indication: INSOMNIA
     Dosage: ONE TABLET NIGHTLY, VIA G-TUBE
     Route: 050
  3. SALAGEN [Concomitant]
     Indication: DRY MOUTH
     Dosage: 2 DAILY, VIA G-TUBE

REACTIONS (7)
  - CONDITION AGGRAVATED [None]
  - DYSPNOEA [None]
  - FEEDING TUBE COMPLICATION [None]
  - INCOHERENT [None]
  - PYREXIA [None]
  - TREMOR [None]
  - VOMITING [None]
